FAERS Safety Report 6288603-3 (Version None)
Quarter: 2009Q3

REPORT INFORMATION
  Report Type: 
  Country: None (occurrence: None)
  Receive Date: 20090729
  Receipt Date: 20090724
  Transmission Date: 20100115
  Serious: Yes (Death)
  Sender: FDA-Public Use
  Company Number: DK-ASTRAZENECA-2009SE05766

PATIENT
  Age: 73 Year
  Sex: Male
  Weight: 93 kg

DRUGS (7)
  1. ATACAND [Suspect]
     Route: 048
     Dates: start: 20060401, end: 20090703
  2. SELO-ZOK [Interacting]
     Route: 048
     Dates: start: 20061001, end: 20090703
  3. RASILEZ HCT [Interacting]
     Indication: HYPERTENSION
     Route: 048
     Dates: start: 20090617, end: 20090703
  4. DIGOXIN ^DAK^ [Interacting]
     Indication: ATRIAL FIBRILLATION
     Route: 048
     Dates: start: 20080601, end: 20090703
  5. MAREVAN [Concomitant]
     Indication: ATRIAL FIBRILLATION
     Route: 048
     Dates: start: 20070401, end: 20090703
  6. FURIX [Concomitant]
     Route: 048
     Dates: start: 20070201
  7. KALEORID [Concomitant]
     Route: 048
     Dates: start: 20070201

REACTIONS (2)
  - DRUG INTERACTION [None]
  - SUDDEN DEATH [None]
